FAERS Safety Report 6917765-7 (Version None)
Quarter: 2010Q3

REPORT INFORMATION
  Report Type: 
  Country: None (occurrence: None)
  Receive Date: 20100810
  Receipt Date: 20100729
  Transmission Date: 20110219
  Serious: Yes (Death, Other)
  Sender: FDA-Public Use
  Company Number: BR-PFIZER INC-2010095419

PATIENT
  Age: 66 Year
  Sex: Male

DRUGS (3)
  1. XALATAN [Suspect]
     Indication: GLAUCOMA
     Dosage: UNK
     Route: 047
     Dates: start: 20040101
  2. XALATAN [Suspect]
     Indication: INTRAOCULAR PRESSURE INCREASED
  3. TIMOLOL [Suspect]
     Indication: GLAUCOMA

REACTIONS (4)
  - HEPATITIS [None]
  - INTRAOCULAR PRESSURE INCREASED [None]
  - LEPROSY [None]
  - TOXOPLASMOSIS [None]
